FAERS Safety Report 12168107 (Version 8)
Quarter: 2017Q1

REPORT INFORMATION
  Report Type: Report from Study
  Country: KR (occurrence: KR)
  Receive Date: 20160310
  Receipt Date: 20170303
  Transmission Date: 20170428
  Serious: Yes (Other)
  Sender: FDA-Public Use
  Company Number: KR-GILEAD-2016-0201776

PATIENT
  Sex: Female

DRUGS (25)
  1. ALGIRON [Concomitant]
     Dosage: UNK
     Route: 048
     Dates: start: 20140505, end: 20140714
  2. AMODIPIN [Concomitant]
     Indication: HYPERTENSION
     Dosage: UNK
     Route: 048
     Dates: start: 20140813
  3. PENIRAMIN [Concomitant]
     Indication: RHINITIS ALLERGIC
     Dosage: 2 MG, QD
     Route: 042
     Dates: start: 20150124, end: 20150127
  4. ULTRACET [Concomitant]
     Active Substance: ACETAMINOPHEN\TRAMADOL HYDROCHLORIDE
     Indication: PANCREATITIS
     Dosage: UNK
     Route: 048
     Dates: start: 20140917, end: 20150107
  5. TALION                             /01587402/ [Concomitant]
     Active Substance: BEPOTASTINE
     Indication: PRURITUS
     Dosage: 10 MG, BID
     Route: 048
     Dates: start: 20140917, end: 20140924
  6. MEGEROL [Concomitant]
     Indication: DECREASED APPETITE
     Dosage: 40 ML, QD
     Route: 048
     Dates: start: 20140124
  7. NEXIUM [Concomitant]
     Active Substance: ESOMEPRAZOLE MAGNESIUM
     Indication: GASTROOESOPHAGEAL REFLUX DISEASE
     Dosage: 40 MG, QD
     Route: 048
     Dates: start: 20150123, end: 20150205
  8. FRAVASOL E [Concomitant]
     Indication: PROPHYLAXIS
     Dosage: UNK
     Dates: start: 20150125, end: 20150125
  9. LIDOMEX [Concomitant]
     Active Substance: PREDNISOLONE VALERATE ACETATE
     Indication: PRURITUS
     Dosage: UNK
     Dates: start: 20140917
  10. COZAAR [Concomitant]
     Active Substance: LOSARTAN POTASSIUM
     Indication: HYPERTENSION
     Dosage: 50 MG, QD
     Route: 048
     Dates: start: 20150123
  11. GASMOTIN [Concomitant]
     Active Substance: MOSAPRIDE CITRATE
     Indication: DYSPEPSIA
     Dosage: 5 MG, TID
     Route: 048
     Dates: start: 20140509
  12. MEGESTROL ACETATE. [Concomitant]
     Active Substance: MEGESTROL ACETATE
     Indication: DECREASED APPETITE
     Dosage: UNK
     Dates: start: 20140522, end: 20140717
  13. PRIMALAN [Concomitant]
     Active Substance: MEQUITAZINE
     Indication: PRURITUS
     Dosage: UNK
     Route: 054
     Dates: start: 20140526, end: 20140802
  14. MUCOSTA [Concomitant]
     Active Substance: REBAMIPIDE
     Indication: GASTROOESOPHAGEAL REFLUX DISEASE
     Dosage: 100 MG, TID
     Dates: start: 20150126
  15. DIABEX S.R. [Concomitant]
     Active Substance: METFORMIN HYDROCHLORIDE
     Indication: DIABETES MELLITUS
     Dosage: UNK
     Route: 048
     Dates: start: 20140813
  16. LAMINA-G [Concomitant]
     Indication: GASTROOESOPHAGEAL REFLUX DISEASE
     Dosage: 20 ML, TID
  17. MG TNA [Concomitant]
     Indication: PROPHYLAXIS
     Dosage: UNK
     Dates: start: 20150126, end: 20150126
  18. ALDACTONE [Concomitant]
     Active Substance: SPIRONOLACTONE
     Indication: ASCITES
     Dosage: UNK
     Route: 048
     Dates: start: 20140508, end: 20140714
  19. DESOWEN [Concomitant]
     Active Substance: DESONIDE
     Indication: PRURITUS
     Dosage: UNK
     Dates: start: 20140526
  20. COZARTAN [Concomitant]
     Indication: HYPERTENSION
     Dosage: UNK
     Route: 048
     Dates: start: 20140813, end: 20150122
  21. AMICETA [Concomitant]
     Indication: PANCREATITIS
     Dosage: UNK
     Route: 048
     Dates: start: 20150105, end: 20150123
  22. TENOFOVIR DISOPROXIL FUMARATE. [Suspect]
     Active Substance: TENOFOVIR DISOPROXIL FUMARATE
     Indication: CHRONIC HEPATITIS B
     Route: 065
  23. PANTOLOC                           /01263204/ [Concomitant]
     Active Substance: PANTOPRAZOLE SODIUM
     Indication: GASTROOESOPHAGEAL REFLUX DISEASE
     Dosage: UNK
     Route: 048
     Dates: start: 20140516
  24. MACPERAN [Concomitant]
     Active Substance: METOCLOPRAMIDE HYDROCHLORIDE
     Indication: NAUSEA
     Dosage: UNK
     Route: 048
     Dates: start: 20140124
  25. RABIET [Concomitant]
     Indication: GASTROOESOPHAGEAL REFLUX DISEASE
     Dosage: UNK
     Route: 048
     Dates: start: 20140714, end: 20150205

REACTIONS (12)
  - Dyspepsia [Unknown]
  - Rhinitis allergic [Unknown]
  - Hypophagia [Unknown]
  - Gastritis [Not Recovered/Not Resolved]
  - Foreign body [Unknown]
  - Hepatic cyst [Not Recovered/Not Resolved]
  - Hepatic steatosis [Not Recovered/Not Resolved]
  - Hepatitis B DNA increased [Unknown]
  - Nausea [Unknown]
  - Vomiting [Unknown]
  - Dementia [Unknown]
  - Asthenia [Unknown]

NARRATIVE: CASE EVENT DATE: 20140616
